FAERS Safety Report 4991019-0 (Version None)
Quarter: 2006Q2

REPORT INFORMATION
  Report Type: 
  Country: None (occurrence: None)
  Receive Date: 20060503
  Receipt Date: 20060328
  Transmission Date: 20061013
  Serious: Yes (Hospitalization)
  Sender: FDA-Public Use
  Company Number: US-MERCK-0603USA04409

PATIENT
  Age: 64 Year
  Sex: Male
  Weight: 98 kg

DRUGS (4)
  1. VIOXX [Suspect]
     Indication: INTERVERTEBRAL DISC PROTRUSION
     Route: 048
     Dates: start: 19990101, end: 20040901
  2. VIOXX [Suspect]
     Indication: BACK PAIN
     Route: 048
     Dates: start: 19990101, end: 20040901
  3. TYLENOL (CAPLET) [Concomitant]
     Route: 065
  4. CELEBREX [Suspect]
     Route: 065
     Dates: start: 19990101, end: 20030101

REACTIONS (8)
  - ABDOMINAL PAIN UPPER [None]
  - ANGINA PECTORIS [None]
  - ASTHMA [None]
  - BLOOD CHOLESTEROL INCREASED [None]
  - CHEST PAIN [None]
  - HERNIA [None]
  - HYPERTENSION [None]
  - MYOCARDIAL INFARCTION [None]
